FAERS Safety Report 8127897-6 (Version None)
Quarter: 2012Q1

REPORT INFORMATION
  Report Type: 
  Country: None (occurrence: None)
  Receive Date: 20120210
  Receipt Date: 20120127
  Transmission Date: 20120608
  Serious: Yes (Other)
  Sender: FDA-Public Use
  Company Number: FR-PFIZER INC-K200901600

PATIENT
  Age: 38 Year
  Sex: Female

DRUGS (7)
  1. PIPAMPERONE HYDROCHLORIDE [Suspect]
     Dosage: 100 MG, SINGLE
     Route: 048
     Dates: start: 20091210, end: 20091210
  2. METFORMIN [Suspect]
     Dosage: 5 DF, SINGLE
     Route: 048
     Dates: start: 20091210, end: 20091210
  3. LORAZEPAM [Suspect]
     Dosage: 30 MG, SINGLE
     Route: 048
     Dates: start: 20091210, end: 20091210
  4. ALTACE [Suspect]
     Dosage: 25 MG, SINGLE
     Route: 048
     Dates: start: 20091210, end: 20091210
  5. LEVOXYL [Suspect]
     Dosage: 5 DF, SINGLE
     Route: 048
     Dates: start: 20091210, end: 20091210
  6. ESCITALOPRAM OXALATE [Suspect]
     Dosage: 50 MG, SINGLE
     Route: 048
     Dates: start: 20091210, end: 20091210
  7. ABILIFY [Suspect]
     Dosage: 25 MG, SINGLE
     Route: 048
     Dates: start: 20091210, end: 20091210

REACTIONS (4)
  - HYPOTENSION [None]
  - SUICIDE ATTEMPT [None]
  - INTENTIONAL OVERDOSE [None]
  - SOMNOLENCE [None]
